FAERS Safety Report 10427025 (Version 1)
Quarter: 2014Q3

REPORT INFORMATION
  Report Type: Spontaneous
  Country: US (occurrence: None)
  Receive Date: 20140902
  Receipt Date: 20140902
  Transmission Date: 20150326
  Serious: No
  Sender: FDA-Public Use
  Company Number: None

PATIENT
  Age: 44 Year
  Sex: Female
  Weight: 75.3 kg

DRUGS (1)
  1. CHANTIX [Suspect]
     Active Substance: VARENICLINE TARTRATE
     Indication: SMOKING CESSATION THERAPY
     Route: 048
     Dates: start: 20140716, end: 20140821

REACTIONS (6)
  - Memory impairment [None]
  - Disturbance in attention [None]
  - Anger [None]
  - Paranoia [None]
  - Irritability [None]
  - Abnormal dreams [None]

NARRATIVE: CASE EVENT DATE: 201407
